FAERS Safety Report 24023239 (Version 1)
Quarter: 2024Q2

REPORT INFORMATION
  Report Type: Report from Study
  Country: IT (occurrence: IT)
  Receive Date: 20240627
  Receipt Date: 20240627
  Transmission Date: 20240716
  Serious: No
  Sender: FDA-Public Use
  Company Number: None

PATIENT
  Age: 75 Year
  Sex: Female

DRUGS (2)
  1. ALECENSA [Suspect]
     Active Substance: ALECTINIB HYDROCHLORIDE
     Indication: Lung squamous cell carcinoma metastatic
     Dosage: 8 TABLETS PER DAY UNTIL 06/09/2023, THEN REDUCED TO 6 TABLETS
     Route: 065
  2. IRBESARTAN [Concomitant]
     Active Substance: IRBESARTAN
     Dosage: 1 TABLET OF 150 MG PER DAY

REACTIONS (2)
  - Blood creatinine abnormal [Recovering/Resolving]
  - Haemoglobin decreased [Recovering/Resolving]

NARRATIVE: CASE EVENT DATE: 20221004
